FAERS Safety Report 7348092-4 (Version None)
Quarter: 2011Q1

REPORT INFORMATION
  Report Type: 
  Country: None (occurrence: None)
  Receive Date: 20110311
  Receipt Date: 20110310
  Transmission Date: 20110831
  Serious: Yes (Other)
  Sender: FDA-Public Use
  Company Number: GB-CEPHALON-2011001113

PATIENT
  Sex: Female

DRUGS (1)
  1. PROVIGIL [Suspect]
     Indication: CHRONIC FATIGUE SYNDROME
     Route: 048
     Dates: start: 20080601

REACTIONS (3)
  - SALIVARY HYPERSECRETION [None]
  - LOWER RESPIRATORY TRACT INFECTION [None]
  - SWOLLEN TONGUE [None]
